FAERS Safety Report 10979143 (Version 1)
Quarter: 2015Q2

REPORT INFORMATION
  Report Type: Spontaneous
  Country: US (occurrence: US)
  Receive Date: 20150402
  Receipt Date: 20150402
  Transmission Date: 20150821
  Serious: No
  Sender: FDA-Public Use
  Company Number: US-PFIZER INC-2015114239

PATIENT
  Age: 72 Year
  Sex: Female
  Weight: 66 kg

DRUGS (1)
  1. NICOTROL [Suspect]
     Active Substance: NICOTINE
     Indication: SMOKING CESSATION THERAPY
     Dosage: UNK, 3X/DAY, (10 MG CARTRIDGE 4 MG DELIVERED OR INHALED)
     Dates: start: 20150330, end: 20150330

REACTIONS (1)
  - Drug ineffective [Unknown]

NARRATIVE: CASE EVENT DATE: 20150330
